APPROVED DRUG PRODUCT: BUCET
Active Ingredient: ACETAMINOPHEN; BUTALBITAL
Strength: 650MG;50MG
Dosage Form/Route: CAPSULE;ORAL
Application: A088991 | Product #001
Applicant: MALLINCKRODT CHEMICAL INC
Approved: Jun 28, 1985 | RLD: No | RS: No | Type: DISCN